FAERS Safety Report 5120994-9 (Version None)
Quarter: 2006Q4

REPORT INFORMATION
  Report Type: 
  Country: None (occurrence: None)
  Receive Date: 20061005
  Receipt Date: 20060922
  Transmission Date: 20070319
  Serious: Yes (Other)
  Sender: FDA-Public Use
  Company Number: PHNU2006DE03227

PATIENT
  Age: 3 Year
  Sex: Female

DRUGS (3)
  1. TRILEPTAL [Suspect]
     Indication: EPILEPSY
     Dosage: 375-0-450 MG/DAY
     Route: 048
  2. TRILEPTAL [Suspect]
     Dosage: 6.25-0-7.5 ML/DAY
     Route: 048
  3. LAMICTAL [Concomitant]

REACTIONS (4)
  - CONVULSION [None]
  - DRUG LEVEL BELOW THERAPEUTIC [None]
  - DYSGEUSIA [None]
  - TREATMENT NONCOMPLIANCE [None]
